FAERS Safety Report 23638776 (Version 1)
Quarter: 2024Q1

REPORT INFORMATION
  Report Type: Spontaneous
  Country: RU (occurrence: RU)
  Receive Date: 20240315
  Receipt Date: 20240315
  Transmission Date: 20240409
  Serious: Yes (Hospitalization)
  Sender: FDA-Public Use
  Company Number: RU-BAYER-2024A038906

PATIENT
  Age: 33 Year
  Sex: Female
  Weight: 65 kg

DRUGS (1)
  1. GADOBUTROL [Suspect]
     Active Substance: GADOBUTROL
     Indication: Magnetic resonance imaging head
     Dosage: 5 ML, ONCE
     Route: 042
     Dates: start: 20240301, end: 20240301

REACTIONS (5)
  - Cough [Recovering/Resolving]
  - Anxiety [Recovering/Resolving]
  - Pruritus [Recovering/Resolving]
  - Salivary hypersecretion [Recovering/Resolving]
  - Hypersensitivity [Recovering/Resolving]

NARRATIVE: CASE EVENT DATE: 20240301
